FAERS Safety Report 19861972 (Version 2)
Quarter: 2021Q3

REPORT INFORMATION
  Report Type: Spontaneous
  Country: JP (occurrence: JP)
  Receive Date: 20210921
  Receipt Date: 20210923
  Transmission Date: 20211014
  Serious: No
  Sender: FDA-Public Use
  Company Number: JP-PFIZER INC-202101095585

PATIENT

DRUGS (1)
  1. GENOTROPIN GOQUICK 5.3MG [Suspect]
     Active Substance: SOMATROPIN
     Dosage: UNK

REACTIONS (5)
  - Device breakage [Unknown]
  - Device physical property issue [Unknown]
  - Device mechanical issue [Unknown]
  - Device breakage [Unknown]
  - Device use error [Unknown]

NARRATIVE: CASE EVENT DATE: 20210824
